FAERS Safety Report 25291877 (Version 3)
Quarter: 2025Q2

REPORT INFORMATION
  Report Type: Spontaneous
  Country: US (occurrence: US)
  Receive Date: 20250510
  Receipt Date: 20250605
  Transmission Date: 20250716
  Serious: No
  Sender: SANOFI AVENTIS
  Company Number: US-SA-2025SA119774

PATIENT
  Age: 27 Year
  Sex: Male

DRUGS (7)
  1. DUPIXENT [Suspect]
     Active Substance: DUPILUMAB
     Indication: Nasal polyps
     Dosage: 300 MG, QOW
     Route: 058
  2. DUPIXENT [Suspect]
     Active Substance: DUPILUMAB
     Indication: Asthma
  3. DUPIXENT [Suspect]
     Active Substance: DUPILUMAB
     Indication: Chronic sinusitis
  4. DUPIXENT [Suspect]
     Active Substance: DUPILUMAB
     Indication: Rhinitis allergic
  5. BUDESONIDE [Concomitant]
     Active Substance: BUDESONIDE
     Dosage: BID
  6. MUPIROCIN [Concomitant]
     Active Substance: MUPIROCIN
     Dosage: BID
  7. FLONASE ALLERGY RELIEF [Concomitant]
     Active Substance: FLUTICASONE PROPIONATE

REACTIONS (5)
  - Acne [Unknown]
  - Mucosal hypertrophy [Unknown]
  - Sinusitis [Unknown]
  - Nasal obstruction [Unknown]
  - Nasal septum deviation [Unknown]
